FAERS Safety Report 24759285 (Version 1)
Quarter: 2024Q4

REPORT INFORMATION
  Report Type: Spontaneous
  Country: US (occurrence: US)
  Receive Date: 20241220
  Receipt Date: 20241220
  Transmission Date: 20250114
  Serious: Yes (Hospitalization, Other)
  Sender: RANBAXY
  Company Number: US-SUN PHARMACEUTICAL INDUSTRIES LTD-2024R1-485858

PATIENT
  Age: 43 Year
  Sex: Male

DRUGS (1)
  1. METHIMAZOLE [Suspect]
     Active Substance: METHIMAZOLE
     Indication: Graves^ disease
     Dosage: UNK
     Route: 065

REACTIONS (6)
  - Cardiomyopathy [Unknown]
  - Shock [Unknown]
  - Ileus [Unknown]
  - Acute kidney injury [Unknown]
  - Sepsis [Unknown]
  - Pneumonia aspiration [Unknown]
